FAERS Safety Report 16880454 (Version 1)
Quarter: 2019Q4

REPORT INFORMATION
  Report Type: Spontaneous
  Country: US (occurrence: US)
  Receive Date: 20190807
  Receipt Date: 20190807
  Transmission Date: 20200122
  Serious: No
  Sender: FDA-Public Use
  Company Number: None

PATIENT
  Age: 68 Year
  Sex: Female
  Weight: 68.04 kg

DRUGS (1)
  1. ALTALUBE [Suspect]
     Active Substance: MINERAL OIL\PETROLATUM
     Indication: CATARACT OPERATION
     Dosage: ?          OTHER DOSE:1/4 INCH;?
     Dates: start: 20190723

REACTIONS (3)
  - Eye swelling [None]
  - Eye pain [None]
  - Ocular hyperaemia [None]

NARRATIVE: CASE EVENT DATE: 20190723
